FAERS Safety Report 7486453-3 (Version None)
Quarter: 2011Q2

REPORT INFORMATION
  Report Type: 
  Country: None (occurrence: None)
  Receive Date: 20110516
  Receipt Date: 20110516
  Transmission Date: 20111010
  Serious: Yes (Disabling)
  Sender: FDA-Public Use
  Company Number: None

PATIENT
  Age: 28 Year
  Sex: Male
  Weight: 82.5547 kg

DRUGS (1)
  1. TERBINAFINE HCL [Suspect]
     Indication: FUNGAL SKIN INFECTION
     Dosage: ONE TABLET ONCE A DAY PO
     Route: 048
     Dates: start: 20110422, end: 20110509

REACTIONS (7)
  - ARTHRALGIA [None]
  - SWELLING [None]
  - ERYTHEMA [None]
  - HEADACHE [None]
  - DIARRHOEA [None]
  - PYREXIA [None]
  - VOMITING [None]
